FAERS Safety Report 19732045 (Version 1)
Quarter: 2021Q3

REPORT INFORMATION
  Report Type: Spontaneous
  Country: CN (occurrence: CN)
  Receive Date: 20210820
  Receipt Date: 20210820
  Transmission Date: 20211014
  Serious: Yes (Other)
  Sender: FDA-Public Use
  Company Number: CN-JNJFOC-20210826895

PATIENT
  Sex: Male

DRUGS (1)
  1. RISPERDAL [Suspect]
     Active Substance: RISPERIDONE
     Indication: SCHIZOPHRENIA
     Route: 048
     Dates: start: 20210126, end: 20210809

REACTIONS (4)
  - Hyperexplexia [Unknown]
  - Muscle spasms [Unknown]
  - Muscle tightness [Unknown]
  - Tongue paralysis [Unknown]
